FAERS Safety Report 26173185 (Version 1)
Quarter: 2025Q4

REPORT INFORMATION
  Report Type: Spontaneous
  Country: CA (occurrence: CA)
  Receive Date: 20251218
  Receipt Date: 20251218
  Transmission Date: 20260118
  Serious: Yes (Death, Life-Threatening, Hospitalization, Disabling, Congenital Anomaly, Other)
  Sender: Haleon PLC
  Company Number: CA-HALEON-2279544

PATIENT
  Age: 40 Year
  Sex: Female
  Weight: 96 kg

DRUGS (233)
  1. VOLTAREN [Suspect]
     Active Substance: DICLOFENAC SODIUM
     Indication: Product used for unknown indication
     Dosage: ROUTE: UNKNOWN
  2. CALTRATE [Suspect]
     Active Substance: CALCIUM CARBONATE
     Indication: Product used for unknown indication
     Dosage: ROUTE: UNKNOWN
  3. CALTRATE [Suspect]
     Active Substance: CALCIUM CARBONATE
     Dosage: ROUTE: UNKNOWN
  4. CALTRATE [Suspect]
     Active Substance: CALCIUM CARBONATE
     Dosage: ROUTE: UNKNOWN
  5. CALTRATE [Suspect]
     Active Substance: CALCIUM CARBONATE
     Dosage: ROUTE: UNKNOWN
  6. VOLTAREN [Suspect]
     Active Substance: DICLOFENAC SODIUM
     Indication: Product used for unknown indication
     Dosage: ROUTE: UNKNOWN
  7. VOLTAREN [Suspect]
     Active Substance: DICLOFENAC SODIUM
     Dosage: ROUTE: UNKNOWN
  8. ACETAMINOPHEN [Suspect]
     Active Substance: ACETAMINOPHEN
     Indication: Rheumatoid arthritis
     Dosage: ROUTE: UNKNOWN
  9. ACETAMINOPHEN [Suspect]
     Active Substance: ACETAMINOPHEN
     Dosage: ROUTE: UNKNOWN
  10. BUTRANS [Suspect]
     Active Substance: BUPRENORPHINE
     Indication: Product used for unknown indication
     Dosage: DOSAGE FORM: PATCH, ROUTE: UNKNOWN
  11. CALCIUM ASCORBATE [Suspect]
     Active Substance: CALCIUM ASCORBATE
     Indication: Product used for unknown indication
     Dosage: ROUTE: UNKNOWN
  12. CALCIUM ASCORBATE [Suspect]
     Active Substance: CALCIUM ASCORBATE
     Dosage: ROUTE: UNKNOWN
  13. CALCIUM GLUBIONATE [Suspect]
     Active Substance: CALCIUM GLUBIONATE
     Indication: Product used for unknown indication
  14. CANDESARTAN [Suspect]
     Active Substance: CANDESARTAN
     Indication: Migraine
  15. CETIRIZINE HYDROCHLORIDE [Suspect]
     Active Substance: CETIRIZINE HYDROCHLORIDE
     Indication: Rheumatoid arthritis
     Dosage: ROUTE: UNKNOWN
  16. CETIRIZINE HYDROCHLORIDE [Suspect]
     Active Substance: CETIRIZINE HYDROCHLORIDE
     Dosage: ROUTE: UNKNOWN
  17. CETIRIZINE HYDROCHLORIDE [Suspect]
     Active Substance: CETIRIZINE HYDROCHLORIDE
  18. CETIRIZINE HYDROCHLORIDE [Suspect]
     Active Substance: CETIRIZINE HYDROCHLORIDE
  19. CETIRIZINE HYDROCHLORIDE [Suspect]
     Active Substance: CETIRIZINE HYDROCHLORIDE
  20. CETIRIZINE HYDROCHLORIDE [Suspect]
     Active Substance: CETIRIZINE HYDROCHLORIDE
  21. CETIRIZINE HYDROCHLORIDE [Suspect]
     Active Substance: CETIRIZINE HYDROCHLORIDE
  22. CETIRIZINE HYDROCHLORIDE [Suspect]
     Active Substance: CETIRIZINE HYDROCHLORIDE
  23. CETIRIZINE HYDROCHLORIDE [Suspect]
     Active Substance: CETIRIZINE HYDROCHLORIDE
     Dosage: ROUTE: UNKNOWN
  24. CETIRIZINE HYDROCHLORIDE [Suspect]
     Active Substance: CETIRIZINE HYDROCHLORIDE
     Dosage: ROUTE: UNKNOWN
  25. CETIRIZINE HYDROCHLORIDE [Suspect]
     Active Substance: CETIRIZINE HYDROCHLORIDE
     Dosage: ROUTE: UNKNOWN
  26. CETIRIZINE HYDROCHLORIDE [Suspect]
     Active Substance: CETIRIZINE HYDROCHLORIDE
     Dosage: ROUTE: UNKNOWN
  27. CETIRIZINE HYDROCHLORIDE [Suspect]
     Active Substance: CETIRIZINE HYDROCHLORIDE
  28. CHLORHEXIDINE GLUCONATE [Suspect]
     Active Substance: CHLORHEXIDINE GLUCONATE
     Indication: Product used for unknown indication
     Dosage: ROUTE: UNKNOWN
  29. CHLORHEXIDINE GLUCONATE [Suspect]
     Active Substance: CHLORHEXIDINE GLUCONATE
     Dosage: ROUTE: UNKNOWN
  30. CIMZIA [Suspect]
     Active Substance: CERTOLIZUMAB PEGOL
     Indication: Rheumatoid arthritis
     Dosage: ROUTE: UNKNOWN
  31. CIMZIA [Suspect]
     Active Substance: CERTOLIZUMAB PEGOL
  32. CIMZIA [Suspect]
     Active Substance: CERTOLIZUMAB PEGOL
  33. CIMZIA [Suspect]
     Active Substance: CERTOLIZUMAB PEGOL
  34. HUMIRA [Suspect]
     Active Substance: ADALIMUMAB
     Indication: Rheumatoid arthritis
  35. HUMIRA [Suspect]
     Active Substance: ADALIMUMAB
     Dosage: ROUTE: UNKNOWN
  36. HUMIRA [Suspect]
     Active Substance: ADALIMUMAB
     Dosage: ROUTE: UNKNOWN
  37. HUMIRA [Suspect]
     Active Substance: ADALIMUMAB
     Dosage: ROUTE: UNKNOWN
  38. HUMIRA [Suspect]
     Active Substance: ADALIMUMAB
  39. HUMIRA [Suspect]
     Active Substance: ADALIMUMAB
     Indication: Rheumatoid arthritis
     Dosage: DOSAGE FORM: SOLUTION SUBCUTANEOUS
  40. HYDROXYCHLOROQUINE [Suspect]
     Active Substance: HYDROXYCHLOROQUINE
     Indication: Rheumatoid arthritis
     Dosage: ROUTE: UNKNOWN
  41. HYDROXYCHLOROQUINE [Suspect]
     Active Substance: HYDROXYCHLOROQUINE
     Dosage: ROUTE: UNKNOWN
  42. HYDROXYCHLOROQUINE [Suspect]
     Active Substance: HYDROXYCHLOROQUINE
     Dosage: ROUTE: UNKNOWN
  43. HYDROXYCHLOROQUINE [Suspect]
     Active Substance: HYDROXYCHLOROQUINE
     Dosage: ROUTE: UNKNOWN
  44. HYDROXYCHLOROQUINE [Suspect]
     Active Substance: HYDROXYCHLOROQUINE
     Dosage: ROUTE: UNKNOWN
  45. HYDROXYCHLOROQUINE [Suspect]
     Active Substance: HYDROXYCHLOROQUINE
     Dosage: ROUTE: UNKNOWN
  46. HYDROXYCHLOROQUINE [Suspect]
     Active Substance: HYDROXYCHLOROQUINE
     Dosage: ROUTE: UNKNOWN
  47. HYDROXYCHLOROQUINE [Suspect]
     Active Substance: HYDROXYCHLOROQUINE
     Dosage: ROUTE: UNKNOWN
  48. HYDROXYCHLOROQUINE [Suspect]
     Active Substance: HYDROXYCHLOROQUINE
     Dosage: ROUTE: UNKNOWN
  49. HYDROXYCHLOROQUINE [Suspect]
     Active Substance: HYDROXYCHLOROQUINE
  50. HYDROXYCHLOROQUINE [Suspect]
     Active Substance: HYDROXYCHLOROQUINE
  51. HYDROXYCHLOROQUINE [Suspect]
     Active Substance: HYDROXYCHLOROQUINE
  52. HYDROXYCHLOROQUINE [Suspect]
     Active Substance: HYDROXYCHLOROQUINE
  53. HYDROXYCHLOROQUINE [Suspect]
     Active Substance: HYDROXYCHLOROQUINE
  54. HYDROXYCHLOROQUINE [Suspect]
     Active Substance: HYDROXYCHLOROQUINE
  55. HYDROXYCHLOROQUINE [Suspect]
     Active Substance: HYDROXYCHLOROQUINE
     Dosage: ROUTE: UNKNOWN
  56. HYDROXYCHLOROQUINE [Suspect]
     Active Substance: HYDROXYCHLOROQUINE
     Dosage: ROUTE: UNKNOWN
  57. HYDROXYCHLOROQUINE [Suspect]
     Active Substance: HYDROXYCHLOROQUINE
  58. HYDROXYCHLOROQUINE [Suspect]
     Active Substance: HYDROXYCHLOROQUINE
  59. HYDROXYCHLOROQUINE [Suspect]
     Active Substance: HYDROXYCHLOROQUINE
  60. HYDROXYCHLOROQUINE [Suspect]
     Active Substance: HYDROXYCHLOROQUINE
  61. HYDROXYCHLOROQUINE [Suspect]
     Active Substance: HYDROXYCHLOROQUINE
  62. ACTEMRA [Suspect]
     Active Substance: TOCILIZUMAB
     Indication: Rheumatoid arthritis
     Dosage: ROUTE: INTRAVENOUS BOLUS
  63. ACTEMRA [Suspect]
     Active Substance: TOCILIZUMAB
  64. ACTEMRA [Suspect]
     Active Substance: TOCILIZUMAB
     Dosage: ROUTE: UNKNOWN
  65. ACTEMRA [Suspect]
     Active Substance: TOCILIZUMAB
     Dosage: ROUTE: UNKNOWN
  66. ACTEMRA [Suspect]
     Active Substance: TOCILIZUMAB
     Dosage: ROUTE: UNKNOWN
  67. ACTEMRA [Suspect]
     Active Substance: TOCILIZUMAB
     Dosage: ROUTE: UNKNOWN
  68. ACTEMRA [Suspect]
     Active Substance: TOCILIZUMAB
     Dosage: ROUTE: UNKNOWN
  69. ACTEMRA [Suspect]
     Active Substance: TOCILIZUMAB
     Dosage: ROUTE: UNKNOWN
  70. ACTEMRA [Suspect]
     Active Substance: TOCILIZUMAB
     Dosage: ROUTE: UNKNOWN
  71. ACTEMRA [Suspect]
     Active Substance: TOCILIZUMAB
  72. ACTEMRA [Suspect]
     Active Substance: TOCILIZUMAB
  73. ACTEMRA [Suspect]
     Active Substance: TOCILIZUMAB
     Dosage: ROUTE: INTRAVENOUS BOLUS
  74. ACTEMRA [Suspect]
     Active Substance: TOCILIZUMAB
     Dosage: ROUTE: INTRAVENOUS BOLUS
  75. ACTEMRA [Suspect]
     Active Substance: TOCILIZUMAB
     Dosage: ROUTE: INTRAVENOUS BOLUS
  76. ACTEMRA [Suspect]
     Active Substance: TOCILIZUMAB
     Dosage: ROUTE: INTRAVENOUS BOLUS
  77. ACTEMRA [Suspect]
     Active Substance: TOCILIZUMAB
  78. ACTEMRA [Suspect]
     Active Substance: TOCILIZUMAB
  79. ACTEMRA [Suspect]
     Active Substance: TOCILIZUMAB
  80. ACTEMRA [Suspect]
     Active Substance: TOCILIZUMAB
  81. AIMOVIG [Suspect]
     Active Substance: ERENUMAB-AOOE
     Indication: Migraine
     Dosage: DOSAGE FORM: SOLUTION, ROUTE: UNKNOWN
  82. ALENDRONIC ACID [Suspect]
     Active Substance: ALENDRONIC ACID
     Indication: Rheumatoid arthritis
  83. ALENDRONIC ACID [Suspect]
     Active Substance: ALENDRONIC ACID
  84. ALENDRONIC ACID [Suspect]
     Active Substance: ALENDRONIC ACID
  85. ALENDRONIC ACID [Suspect]
     Active Substance: ALENDRONIC ACID
     Dosage: ROUTE: UNKNOWN
  86. LEFLUNOMIDE [Suspect]
     Active Substance: LEFLUNOMIDE
     Indication: Rheumatoid arthritis
  87. LEFLUNOMIDE [Suspect]
     Active Substance: LEFLUNOMIDE
  88. LEFLUNOMIDE [Suspect]
     Active Substance: LEFLUNOMIDE
     Dosage: ROUTE: UNKNOWN
  89. LEFLUNOMIDE [Suspect]
     Active Substance: LEFLUNOMIDE
  90. LEFLUNOMIDE [Suspect]
     Active Substance: LEFLUNOMIDE
  91. LEFLUNOMIDE [Suspect]
     Active Substance: LEFLUNOMIDE
  92. LEFLUNOMIDE [Suspect]
     Active Substance: LEFLUNOMIDE
  93. LEFLUNOMIDE [Suspect]
     Active Substance: LEFLUNOMIDE
  94. LEFLUNOMIDE [Suspect]
     Active Substance: LEFLUNOMIDE
     Dosage: ROUTE: UNKNOWN
  95. TRAMADOL [Suspect]
     Active Substance: TRAMADOL
     Indication: Product used for unknown indication
     Dosage: ROUTE: UNKNOWN
  96. ARAVA [Suspect]
     Active Substance: LEFLUNOMIDE
     Indication: Rheumatoid arthritis
     Dosage: ROUTE: UNKNOWN
  97. ARAVA [Suspect]
     Active Substance: LEFLUNOMIDE
  98. ARAVA [Suspect]
     Active Substance: LEFLUNOMIDE
     Dosage: ROUTE: UNKNOWN
  99. ARAVA [Suspect]
     Active Substance: LEFLUNOMIDE
  100. ATOMOXETINE HYDROCHLORIDE [Suspect]
     Active Substance: ATOMOXETINE HYDROCHLORIDE
     Indication: Migraine
     Dosage: ROUTE: UNKNOWN
  101. AZATHIOPRINE [Suspect]
     Active Substance: AZATHIOPRINE
     Indication: Product used for unknown indication
     Dosage: ROUTE: UNKNOWN
  102. BOTULINUM TOXIN TYPE A [Suspect]
     Active Substance: BOTULINUM TOXIN TYPE A
     Indication: Product used for unknown indication
     Dosage: DOSAGE FORM: POWDER FOR SOLUTION, ROUTE: UNKNOWN
  103. CELECOXIB [Suspect]
     Active Substance: CELECOXIB
     Indication: Product used for unknown indication
  104. CELECOXIB [Suspect]
     Active Substance: CELECOXIB
     Dosage: ROUTE: UNKNOWN
  105. CELECOXIB [Suspect]
     Active Substance: CELECOXIB
     Dosage: ROUTE: UNKNOWN
  106. CELECOXIB [Suspect]
     Active Substance: CELECOXIB
     Dosage: ROUTE: UNKNOWN
  107. CERTOLIZUMAB PEGOL [Suspect]
     Active Substance: CERTOLIZUMAB PEGOL
     Indication: Rheumatoid arthritis
  108. CERTOLIZUMAB PEGOL [Suspect]
     Active Substance: CERTOLIZUMAB PEGOL
  109. CERTOLIZUMAB PEGOL [Suspect]
     Active Substance: CERTOLIZUMAB PEGOL
     Dosage: ROUTE: UNKNOWN
  110. CERTOLIZUMAB PEGOL [Suspect]
     Active Substance: CERTOLIZUMAB PEGOL
     Dosage: ROUTE: UNKNOWN
  111. COSENTYX [Suspect]
     Active Substance: SECUKINUMAB
     Indication: Rheumatoid arthritis
     Dosage: ROUTE: UNKNOWN
  112. COSENTYX [Suspect]
     Active Substance: SECUKINUMAB
     Indication: Psoriatic arthropathy
  113. COSENTYX [Suspect]
     Active Substance: SECUKINUMAB
     Indication: Rheumatoid arthritis
     Dosage: ROUTE: UNKNOWN
  114. COSENTYX [Suspect]
     Active Substance: SECUKINUMAB
     Indication: Psoriatic arthropathy
  115. DESOXIMETASONE [Suspect]
     Active Substance: DESOXIMETASONE
     Indication: Rheumatoid arthritis
  116. DICLOFENAC [Suspect]
     Active Substance: DICLOFENAC
     Indication: Product used for unknown indication
  117. DOMPERIDONE MALEATE [Suspect]
     Active Substance: DOMPERIDONE MALEATE
     Indication: Product used for unknown indication
     Dosage: ROUTE: UNKNOWN
  118. ENBREL [Suspect]
     Active Substance: ETANERCEPT
     Indication: Rheumatoid arthritis
  119. ENBREL [Suspect]
     Active Substance: ETANERCEPT
     Dosage: ROUTE: UNKNOWN
  120. ENBREL [Suspect]
     Active Substance: ETANERCEPT
     Dosage: ROUTE: UNKNOWN
  121. ENBREL [Suspect]
     Active Substance: ETANERCEPT
  122. ENBREL [Suspect]
     Active Substance: ETANERCEPT
  123. ENBREL [Suspect]
     Active Substance: ETANERCEPT
  124. ENBREL [Suspect]
     Active Substance: ETANERCEPT
  125. ENBREL [Suspect]
     Active Substance: ETANERCEPT
  126. ERELZI [Suspect]
     Active Substance: ETANERCEPT-SZZS
     Indication: Rheumatoid arthritis
     Dosage: ROUTE: UNKNOWN
  127. FLUMETHASONE [Suspect]
     Active Substance: FLUMETHASONE
     Indication: Product used for unknown indication
     Dosage: ROUTE: UNKNOWN
  128. FLUMETHASONE PIVALATE [Suspect]
     Active Substance: FLUMETHASONE PIVALATE
     Indication: Product used for unknown indication
     Dosage: ROUTE: UNKNOWN
  129. FOLIC ACID [Suspect]
     Active Substance: FOLIC ACID
     Indication: Rheumatoid arthritis
     Dosage: ROUTE: UNKNOWN
  130. FOLIC ACID [Suspect]
     Active Substance: FOLIC ACID
     Dosage: ROUTE: UNKNOWN
  131. FOLIC ACID [Suspect]
     Active Substance: FOLIC ACID
     Dosage: ROUTE: UNKNOWN
  132. FOLIC ACID [Suspect]
     Active Substance: FOLIC ACID
     Dosage: ROUTE: UNKNOWN
  133. FOLIC ACID [Suspect]
     Active Substance: FOLIC ACID
     Dosage: ROUTE: UNKNOWN
  134. FOLIC ACID [Suspect]
     Active Substance: FOLIC ACID
     Dosage: ROUTE: UNKNOWN
  135. FOLIC ACID [Suspect]
     Active Substance: FOLIC ACID
     Dosage: ROUTE: UNKNOWN
  136. FOLIC ACID [Suspect]
     Active Substance: FOLIC ACID
  137. FOLIC ACID [Suspect]
     Active Substance: FOLIC ACID
  138. FOLIC ACID [Suspect]
     Active Substance: FOLIC ACID
     Dosage: ROUTE: UNKNOWN
  139. FOLIC ACID [Suspect]
     Active Substance: FOLIC ACID
     Dosage: ROUTE: UNKNOWN
  140. FOLIC ACID [Suspect]
     Active Substance: FOLIC ACID
     Dosage: ROUTE: UNKNOWN
  141. FOSAMAX [Suspect]
     Active Substance: ALENDRONATE SODIUM
     Indication: Rheumatoid arthritis
  142. FOSAMAX [Suspect]
     Active Substance: ALENDRONATE SODIUM
     Dosage: ROUTE: UNKNOWN
  143. FOSAMAX [Suspect]
     Active Substance: ALENDRONATE SODIUM
  144. FOSAMAX [Suspect]
     Active Substance: ALENDRONATE SODIUM
  145. GOLD [Suspect]
     Active Substance: GOLD
     Indication: Product used for unknown indication
     Dosage: ROUTE: UNKNOWN
  146. GOLD SODIUM THIOMALATE [Suspect]
     Active Substance: GOLD SODIUM THIOMALATE
     Indication: Product used for unknown indication
     Dosage: ROUTE: UNKNOWN
  147. GOLIMUMAB [Suspect]
     Active Substance: GOLIMUMAB
     Indication: Rheumatoid arthritis
     Dosage: ROUTE: UNKNOWN
  148. RAMIPRIL [Suspect]
     Active Substance: RAMIPRIL
     Indication: Rheumatoid arthritis
     Dosage: ROUTE: UNKNOWN
  149. RITUXIMAB [Suspect]
     Active Substance: RITUXIMAB
     Indication: Rheumatoid arthritis
  150. RITUXIMAB [Suspect]
     Active Substance: RITUXIMAB
  151. RITUXIMAB [Suspect]
     Active Substance: RITUXIMAB
  152. RITUXIMAB [Suspect]
     Active Substance: RITUXIMAB
  153. RITUXIMAB [Suspect]
     Active Substance: RITUXIMAB
  154. RITUXIMAB [Suspect]
     Active Substance: RITUXIMAB
  155. RITUXIMAB [Suspect]
     Active Substance: RITUXIMAB
  156. RITUXIMAB [Suspect]
     Active Substance: RITUXIMAB
     Dosage: ROUTE: UNKNOWN
  157. RITUXIMAB [Suspect]
     Active Substance: RITUXIMAB
     Dosage: ROUTE: UNKNOWN
  158. RITUXIMAB [Suspect]
     Active Substance: RITUXIMAB
     Dosage: ROUTE: UNKNOWN
  159. RITUXIMAB [Suspect]
     Active Substance: RITUXIMAB
     Dosage: ROUTE: UNKNOWN
  160. RITUXIMAB [Suspect]
     Active Substance: RITUXIMAB
     Dosage: ROUTE: UNKNOWN
  161. RITUXIMAB [Suspect]
     Active Substance: RITUXIMAB
     Dosage: ROUTE: UNKNOWN
  162. RITUXIMAB [Suspect]
     Active Substance: RITUXIMAB
     Dosage: ROUTE: UNKNOWN
  163. RITUXIMAB [Suspect]
     Active Substance: RITUXIMAB
     Dosage: ROUTE: UNKNOWN
  164. RITUXIMAB [Suspect]
     Active Substance: RITUXIMAB
     Dosage: ROUTE: UNKNOWN
  165. RITUXIMAB [Suspect]
     Active Substance: RITUXIMAB
     Dosage: ROUTE: UNKNOWN
  166. RITUXIMAB [Suspect]
     Active Substance: RITUXIMAB
     Dosage: ROUTE: UNKNOWN
  167. RITUXIMAB [Suspect]
     Active Substance: RITUXIMAB
     Dosage: ROUTE: UNKNOWN
  168. RITUXIMAB [Suspect]
     Active Substance: RITUXIMAB
     Dosage: ROUTE: UNKNOWN
  169. RITUXIMAB [Suspect]
     Active Substance: RITUXIMAB
     Dosage: ROUTE: UNKNOWN
  170. RITUXIMAB [Suspect]
     Active Substance: RITUXIMAB
     Dosage: ROUTE: UNKNOWN
  171. RITUXIMAB [Suspect]
     Active Substance: RITUXIMAB
     Dosage: ROUTE: UNKNOWN
  172. RITUXIMAB [Suspect]
     Active Substance: RITUXIMAB
  173. RITUXIMAB [Suspect]
     Active Substance: RITUXIMAB
  174. RITUXIMAB [Suspect]
     Active Substance: RITUXIMAB
  175. RITUXIMAB [Suspect]
     Active Substance: RITUXIMAB
  176. RITUXIMAB [Suspect]
     Active Substance: RITUXIMAB
     Dosage: ROUTE: UNKNOWN
  177. RITUXIMAB [Suspect]
     Active Substance: RITUXIMAB
  178. RITUXIMAB [Suspect]
     Active Substance: RITUXIMAB
  179. RITUXIMAB [Suspect]
     Active Substance: RITUXIMAB
  180. RITUXIMAB [Suspect]
     Active Substance: RITUXIMAB
     Dosage: ROUTE: UNKNOWN
  181. RITUXIMAB [Suspect]
     Active Substance: RITUXIMAB
  182. DICLOFENAC [Suspect]
     Active Substance: DICLOFENAC
     Indication: Product used for unknown indication
     Dosage: ROUTE: UNKNOWN
  183. DICLOFENAC [Suspect]
     Active Substance: DICLOFENAC
     Dosage: ROUTE: UNKNOWN
  184. HYDROXYCHLOROQUINE SULFATE [Suspect]
     Active Substance: HYDROXYCHLOROQUINE SULFATE
     Indication: Rheumatoid arthritis
  185. HYDROXYCHLOROQUINE SULFATE [Suspect]
     Active Substance: HYDROXYCHLOROQUINE SULFATE
  186. HYDROXYCHLOROQUINE SULFATE [Suspect]
     Active Substance: HYDROXYCHLOROQUINE SULFATE
     Dosage: ROUTE: UNKNOWN
  187. HYDROXYCHLOROQUINE SULFATE [Suspect]
     Active Substance: HYDROXYCHLOROQUINE SULFATE
     Dosage: ROUTE: UNKNOWN
  188. HYDROXYCHLOROQUINE SULFATE [Suspect]
     Active Substance: HYDROXYCHLOROQUINE SULFATE
     Dosage: ROUTE: UNKNOWN
  189. HYDROXYCHLOROQUINE SULFATE [Suspect]
     Active Substance: HYDROXYCHLOROQUINE SULFATE
     Dosage: ROUTE: UNKNOWN
  190. HYDROXYCHLOROQUINE SULFATE [Suspect]
     Active Substance: HYDROXYCHLOROQUINE SULFATE
     Dosage: ROUTE: UNKNOWN
  191. HYRIMOZ [Suspect]
     Active Substance: ADALIMUMAB-ADAZ
     Indication: Rheumatoid arthritis
     Dosage: DOSAGE FORM: SOLUTION SUBCUTANEOUS
  192. HYRIMOZ [Suspect]
     Active Substance: ADALIMUMAB-ADAZ
     Indication: Rheumatoid arthritis
  193. HYRIMOZ [Suspect]
     Active Substance: ADALIMUMAB-ADAZ
  194. HYRIMOZ [Suspect]
     Active Substance: ADALIMUMAB-ADAZ
  195. INFLIXIMAB [Suspect]
     Active Substance: INFLIXIMAB
     Indication: Rheumatoid arthritis
  196. INFLIXIMAB [Suspect]
     Active Substance: INFLIXIMAB
  197. INFLIXIMAB [Suspect]
     Active Substance: INFLIXIMAB
     Dosage: ROUTE: UNKNOWN
  198. INFLIXIMAB [Suspect]
     Active Substance: INFLIXIMAB
  199. INFLIXIMAB [Suspect]
     Active Substance: INFLIXIMAB
  200. LAMICTAL [Suspect]
     Active Substance: LAMOTRIGINE
     Indication: Product used for unknown indication
     Dosage: ROUTE: UNKNOWN
  201. LAMICTAL [Suspect]
     Active Substance: LAMOTRIGINE
  202. LAMICTAL [Suspect]
     Active Substance: LAMOTRIGINE
  203. LAMICTAL [Suspect]
     Active Substance: LAMOTRIGINE
  204. LAMICTAL [Suspect]
     Active Substance: LAMOTRIGINE
  205. LAMICTAL [Suspect]
     Active Substance: LAMOTRIGINE
  206. OXYCODONE [Suspect]
     Active Substance: OXYCODONE
     Indication: Product used for unknown indication
     Dosage: ROUTE: UNKNOWN
  207. PANTOPRAZOLE SODIUM [Suspect]
     Active Substance: PANTOPRAZOLE SODIUM
     Indication: Product used for unknown indication
     Dosage: ROUTE: UNKNOWN
  208. PHENYLEPHRINE HYDROCHLORIDE [Suspect]
     Active Substance: PHENYLEPHRINE HYDROCHLORIDE
     Indication: Rheumatoid arthritis
     Dosage: ROUTE: UNKNOWN
  209. PHENYLEPHRINE HYDROCHLORIDE [Suspect]
     Active Substance: PHENYLEPHRINE HYDROCHLORIDE
     Dosage: ROUTE: UNKNOWN
  210. RITUXIMAB [Suspect]
     Active Substance: RITUXIMAB
     Indication: Rheumatoid arthritis
     Dosage: ROUTE: UNKNOWN
  211. APREMILAST [Suspect]
     Active Substance: APREMILAST
     Indication: Rheumatoid arthritis
     Dosage: ROUTE: UNKNOWN
  212. HYDROCORTISONE [Suspect]
     Active Substance: HYDROCORTISONE
     Indication: Product used for unknown indication
     Dosage: ROUTE: UNKNOWN
  213. LEFLUNOMIDE [Suspect]
     Active Substance: LEFLUNOMIDE
     Indication: Rheumatoid arthritis
  214. LEFLUNOMIDE [Suspect]
     Active Substance: LEFLUNOMIDE
  215. LEFLUNOMIDE [Suspect]
     Active Substance: LEFLUNOMIDE
     Dosage: ROUTE: UNKNOWN
  216. LEFLUNOMIDE [Suspect]
     Active Substance: LEFLUNOMIDE
     Dosage: ROUTE: UNKNOWN
  217. LEFLUNOMIDE [Suspect]
     Active Substance: LEFLUNOMIDE
     Dosage: ROUTE: UNKNOWN
  218. LEFLUNOMIDE [Suspect]
     Active Substance: LEFLUNOMIDE
     Indication: Rheumatoid arthritis
     Dosage: ROUTE: UNKNOWN
  219. TOPIRAMATE [Suspect]
     Active Substance: TOPIRAMATE
     Indication: Migraine
     Dosage: ROUTE: UNKNOWN
  220. TOPIRAMATE [Suspect]
     Active Substance: TOPIRAMATE
     Dosage: ROUTE: UNKNOWN
  221. TOPIRAMATE [Suspect]
     Active Substance: TOPIRAMATE
     Dosage: ROUTE: UNKNOWN
  222. TOPIRAMATE [Suspect]
     Active Substance: TOPIRAMATE
     Dosage: ROUTE: UNKNOWN
  223. SIMPONI [Suspect]
     Active Substance: GOLIMUMAB
     Indication: Rheumatoid arthritis
     Dosage: DOSAGE FORM: SOLUTION SUBCUTANEOUS, ROUTE: UNKNOWN
  224. SIRUKUMAB [Suspect]
     Active Substance: SIRUKUMAB
     Indication: Product used for unknown indication
     Dosage: ROUTE: UNKNOWN
  225. SODIUM AUROTIOSULFATE [Suspect]
     Active Substance: SODIUM AUROTIOSULFATE
     Indication: Product used for unknown indication
     Dosage: ROUTE: UNKNOWN
  226. TRAZODONE HYDROCHLORIDE [Suspect]
     Active Substance: TRAZODONE HYDROCHLORIDE
     Indication: Product used for unknown indication
     Dosage: ROUTE: UNKNOWN
  227. TRETINOIN [Suspect]
     Active Substance: TRETINOIN
     Indication: Product used for unknown indication
     Dosage: ROUTE: UNKNOWN
  228. TRIAMCINOLONE [Suspect]
     Active Substance: TRIAMCINOLONE
     Indication: Product used for unknown indication
     Dosage: ROUTE: UNKNOWN
  229. VITAMIN C [Suspect]
     Active Substance: ASCORBIC ACID
     Indication: Product used for unknown indication
     Dosage: ROUTE: UNKNOWN
  230. VITAMIN D3 [Suspect]
     Active Substance: CHOLECALCIFEROL
     Indication: Product used for unknown indication
     Dosage: ROUTE: UNKNOWN
  231. VOLTAREN [Suspect]
     Active Substance: DICLOFENAC SODIUM
     Indication: Product used for unknown indication
  232. XELJANZ [Suspect]
     Active Substance: TOFACITINIB CITRATE
     Indication: Rheumatoid arthritis
     Dosage: ROUTE: UNKNOWN
  233. PSEUDOEPHEDRINE HYDROCHLORIDE [Suspect]
     Active Substance: PSEUDOEPHEDRINE HYDROCHLORIDE
     Indication: Rheumatoid arthritis
     Dosage: ROUTE: UNKNOWN

REACTIONS (12)
  - Wound [Fatal]
  - Synovitis [Fatal]
  - Product quality issue [Fatal]
  - Product use issue [Fatal]
  - Product use in unapproved indication [Fatal]
  - Taste disorder [Fatal]
  - Intentional product use issue [Fatal]
  - Contraindicated product administered [Fatal]
  - Drug hypersensitivity [Fatal]
  - Weight increased [Fatal]
  - Drug intolerance [Fatal]
  - Vomiting [Fatal]
